FAERS Safety Report 6180682-7 (Version None)
Quarter: 2009Q2

REPORT INFORMATION
  Report Type: 
  Country: None (occurrence: None)
  Receive Date: 20090506
  Receipt Date: 20090422
  Transmission Date: 20091009
  Serious: Yes (Other)
  Sender: FDA-Public Use
  Company Number: JP-ROCHE-626480

PATIENT
  Sex: Male
  Weight: 24 kg

DRUGS (5)
  1. TAMIFLU [Suspect]
     Indication: INFLUENZA
     Route: 048
     Dates: start: 20090124, end: 20090124
  2. TAMIFLU [Suspect]
     Dosage: DOSE DECREASED
     Route: 048
     Dates: start: 20090125, end: 20090125
  3. CALONAL [Concomitant]
     Dosage: FORM: FINE GRANULE
     Route: 048
     Dates: start: 20090124, end: 20090125
  4. MUCODYNE [Concomitant]
     Dosage: FORM: FINE GRANULE
     Route: 048
     Dates: start: 20090124, end: 20090125
  5. CODEINE PHOSPHATE [Concomitant]
     Route: 048
     Dates: start: 20090124, end: 20090125

REACTIONS (3)
  - ABNORMAL BEHAVIOUR [None]
  - AGITATION [None]
  - INCONTINENCE [None]
